FAERS Safety Report 18437843 (Version 2)
Quarter: 2021Q1

REPORT INFORMATION
  Report Type: Report from Study
  Country: CN (occurrence: CN)
  Receive Date: 20201028
  Receipt Date: 20210309
  Transmission Date: 20210419
  Serious: Yes (Other)
  Sender: FDA-Public Use
  Company Number: CN-ASTRAZENECA-2020SF40284

PATIENT
  Age: 18977 Day
  Sex: Female

DRUGS (17)
  1. REDUCED GLUTATHIONE FOR INJECTION [Concomitant]
     Indication: HEPATIC FUNCTION ABNORMAL
     Dosage: 1.8 G OTHER
     Route: 042
     Dates: start: 20200925, end: 20200930
  2. DURVALUMAB. [Suspect]
     Active Substance: DURVALUMAB
     Indication: CERVIX CARCINOMA
     Route: 042
     Dates: start: 20200914, end: 20200914
  3. CISPLATIN. [Suspect]
     Active Substance: CISPLATIN
     Indication: CERVIX CARCINOMA
     Route: 042
     Dates: start: 20200907, end: 20200907
  4. REDUCED GLUTATHIONE FOR INJECTION [Concomitant]
     Indication: LIVER INJURY
     Dosage: 1.8 G OTHER
     Route: 042
     Dates: start: 20200925, end: 20200930
  5. CISPLATIN. [Suspect]
     Active Substance: CISPLATIN
     Indication: CERVIX CARCINOMA
     Route: 042
     Dates: start: 20200824, end: 20200824
  6. BRACHYTHERAPY [Suspect]
     Active Substance: RADIATION THERAPY
     Indication: CERVIX CARCINOMA
     Route: 065
  7. CISPLATIN. [Suspect]
     Active Substance: CISPLATIN
     Indication: CERVIX CARCINOMA
     Route: 042
     Dates: start: 20200831, end: 20200831
  8. METHYLPREDNISOLONE SODIUM SUCCINATE FOR INJECTION [Concomitant]
     Active Substance: METHYLPREDNISOLONE SODIUM SUCCINATE
     Indication: HEPATIC FUNCTION ABNORMAL
     Route: 042
     Dates: start: 20200926, end: 20200928
  9. MAGNESIUM ISOGLYCYRRHIZINATE INJECTION [Concomitant]
     Indication: HEPATIC FUNCTION ABNORMAL
     Dosage: 100.0 MG OTHER
     Route: 042
     Dates: start: 20200925, end: 20200926
  10. CISPLATIN. [Suspect]
     Active Substance: CISPLATIN
     Indication: CERVIX CARCINOMA
     Route: 042
     Dates: start: 20200914, end: 20200914
  11. DURVALUMAB. [Suspect]
     Active Substance: DURVALUMAB
     Indication: CERVIX CARCINOMA
     Route: 042
     Dates: start: 20200817, end: 20200817
  12. METHYLPREDNISOLONE SODIUM SUCCINATE FOR INJECTION [Concomitant]
     Active Substance: METHYLPREDNISOLONE SODIUM SUCCINATE
     Indication: LIVER INJURY
     Route: 042
     Dates: start: 20200926, end: 20200928
  13. CEFOPERAZONE SODIUM SULBACTAM SODIUM FOR INJECTION [Concomitant]
     Indication: HEPATIC FUNCTION ABNORMAL
     Route: 042
     Dates: start: 20200926, end: 20200930
  14. CISPLATIN. [Suspect]
     Active Substance: CISPLATIN
     Indication: CERVIX CARCINOMA
     Route: 042
     Dates: start: 20200817, end: 20200817
  15. EBRT [Suspect]
     Active Substance: RADIATION THERAPY
     Indication: CERVIX CARCINOMA
     Route: 065
  16. CEFOPERAZONE SODIUM SULBACTAM SODIUM FOR INJECTION [Concomitant]
     Indication: INFLAMMATION
     Route: 042
     Dates: start: 20200926, end: 20200930
  17. URSODEOXYCHOLIC ACID CAPSULE [Concomitant]
     Indication: HEPATIC FUNCTION ABNORMAL
     Route: 048
     Dates: start: 20200926, end: 20201009

REACTIONS (1)
  - Cholecystitis chronic [Not Recovered/Not Resolved]

NARRATIVE: CASE EVENT DATE: 20200928
